FAERS Safety Report 9580304 (Version 1)
Quarter: 2013Q3

REPORT INFORMATION
  Report Type: Spontaneous
  Country: US (occurrence: None)
  Receive Date: 20130916
  Receipt Date: 20130916
  Transmission Date: 20140515
  Serious: Yes (Other)
  Sender: FDA-Public Use
  Company Number: JPI-P-024899

PATIENT
  Age: 46 Year
  Sex: Female
  Weight: 65.77 kg

DRUGS (1)
  1. XYREM (500 MILLIGRAM/MILLILITERS, SOLUTION) (SODIUM OXYBATE) [Suspect]
     Indication: NARCOLEPSY
     Dosage: 4.5 GM  (2.25 GM,  2 IN 1 D), ORAL
     Route: 048
     Dates: start: 20110701

REACTIONS (14)
  - Weight decreased [None]
  - Fungal infection [None]
  - Skin burning sensation [None]
  - Pruritus [None]
  - Pollakiuria [None]
  - Decreased appetite [None]
  - Enuresis [None]
  - Stress [None]
  - Fatigue [None]
  - Somnolence [None]
  - Contusion [None]
  - Fall [None]
  - Sudden onset of sleep [None]
  - Dizziness [None]
